FAERS Safety Report 5108819-9 (Version None)
Quarter: 2006Q3

REPORT INFORMATION
  Report Type: 
  Country: None (occurrence: None)
  Receive Date: 20060915
  Receipt Date: 20060915
  Transmission Date: 20061208
  Serious: Yes (Other)
  Sender: FDA-Public Use
  Company Number: None

PATIENT
  Age: 67 Year
  Sex: Male
  Weight: 70.3075 kg

DRUGS (2)
  1. ROPINIROLE HCL [Suspect]
     Indication: RESTLESS LEGS SYNDROME
     Dosage: 0.5 MG HS PO, 0.25 MG HS PO
     Route: 048
     Dates: start: 20060608, end: 20060611
  2. ROPINIROLE HCL [Suspect]

REACTIONS (5)
  - ABNORMAL BEHAVIOUR [None]
  - CONFUSIONAL STATE [None]
  - DISORIENTATION [None]
  - HALLUCINATION, VISUAL [None]
  - METABOLIC ENCEPHALOPATHY [None]
